FAERS Safety Report 10504599 (Version 1)
Quarter: 2014Q3

REPORT INFORMATION
  Report Type: Spontaneous
  Country: US (occurrence: None)
  Receive Date: 20140912
  Receipt Date: 20140912
  Transmission Date: 20150326
  Serious: Yes (Other)
  Sender: FDA-Public Use
  Company Number: 1000067535

PATIENT
  Age: 57 Year
  Sex: Female
  Weight: 129 kg

DRUGS (6)
  1. METHOTREXATE [Concomitant]
     Active Substance: METHOTREXATE
  2. PREDNISONE (PREDNISONE) [Suspect]
     Active Substance: PREDNISONE
  3. HYZAAR [Concomitant]
     Active Substance: HYDROCHLOROTHIAZIDE\LOSARTAN POTASSIUM
  4. PULMICORT TURBUHALER [Concomitant]
     Active Substance: BUDESONIDE
  5. SPIRIVA [Concomitant]
     Active Substance: TIOTROPIUM BROMIDE MONOHYDRATE
  6. DALIRESP [Suspect]
     Active Substance: ROFLUMILAST
     Indication: SARCOIDOSIS
     Dosage: 1 IN 1 D
     Route: 048
     Dates: start: 20140222

REACTIONS (5)
  - Depression [None]
  - Decreased appetite [None]
  - Off label use [None]
  - Weight decreased [None]
  - Insomnia [None]

NARRATIVE: CASE EVENT DATE: 20140222
